FAERS Safety Report 9737682 (Version 1)
Quarter: 2013Q4

REPORT INFORMATION
  Report Type: Spontaneous
  Country: US (occurrence: US)
  Receive Date: 20131208
  Receipt Date: 20131208
  Transmission Date: 20140711
  Serious: No
  Sender: FDA-Public Use
  Company Number: US-SA-2013SA101359

PATIENT
  Age: 78 Year
  Sex: Female

DRUGS (7)
  1. RENVELA [Suspect]
     Indication: HYPERPHOSPHATAEMIA
     Dosage: 3 TABLETS THREE TIMES A DAY WITH MEALS AND ONE TABLET TWO TIMES WITH SNACKS
     Route: 065
  2. NORCO [Interacting]
     Indication: PRODUCT USED FOR UNKNOWN INDICATION
     Route: 065
  3. SYNTHROID [Concomitant]
  4. IRON [Concomitant]
  5. ALLOPURINOL [Concomitant]
     Dosage: ALSO TAKEN IN THE FORM OF ZYLOPRIM
  6. LASIX [Concomitant]
  7. FOLIC ACID [Concomitant]

REACTIONS (1)
  - Drug interaction [Unknown]
